FAERS Safety Report 7565870-7 (Version None)
Quarter: 2011Q2

REPORT INFORMATION
  Report Type: 
  Country: None (occurrence: None)
  Receive Date: 20110623
  Receipt Date: 20110620
  Transmission Date: 20111010
  Serious: No
  Sender: FDA-Public Use
  Company Number: US-PFIZER INC-2011134317

PATIENT
  Sex: Female
  Weight: 68.027 kg

DRUGS (1)
  1. PRISTIQ [Suspect]
     Indication: DEPRESSION
     Dosage: 50 MG, DAILY
     Route: 048
     Dates: start: 20110614

REACTIONS (3)
  - MYALGIA [None]
  - MIDDLE INSOMNIA [None]
  - FATIGUE [None]
